FAERS Safety Report 6385164-5 (Version None)
Quarter: 2009Q4

REPORT INFORMATION
  Report Type: 
  Country: None (occurrence: None)
  Receive Date: 20091002
  Receipt Date: 20090504
  Transmission Date: 20100525
  Serious: Yes (Disabling)
  Sender: FDA-Public Use
  Company Number: US-ASTRAZENECA-2006UW03401

PATIENT
  Sex: Female
  Weight: 85.7 kg

DRUGS (7)
  1. ARIMIDEX [Suspect]
     Route: 048
     Dates: start: 20040401, end: 20090501
  2. HORMONAL BREAST CANCER TREATMENT [Concomitant]
  3. EFFEXOR [Concomitant]
  4. GLUCOPHAGE [Concomitant]
  5. GLIPIZIDE [Concomitant]
  6. ACTOS [Concomitant]
  7. CALCIUM [Concomitant]

REACTIONS (5)
  - ARTHRALGIA [None]
  - BONE PAIN [None]
  - EMOTIONAL DISORDER [None]
  - HYPERHIDROSIS [None]
  - MYALGIA [None]
